FAERS Safety Report 23207688 (Version 2)
Quarter: 2025Q2

REPORT INFORMATION
  Report Type: Spontaneous
  Country: US (occurrence: US)
  Receive Date: 20231120
  Receipt Date: 20250516
  Transmission Date: 20250717
  Serious: No
  Sender: COHERUS
  Company Number: US-COHERUS BIOSCIENCES, Inc.-2023-COH-US000283

PATIENT

DRUGS (4)
  1. UDENYCA [Suspect]
     Active Substance: PEGFILGRASTIM-CBQV
     Indication: Prophylaxis
     Dosage: 6 MG, MONTHLY
     Route: 058
     Dates: start: 20230625
  2. OXYCONTIN [Concomitant]
     Active Substance: OXYCODONE HYDROCHLORIDE
     Dates: start: 202306
  3. ZOFRAN [Concomitant]
     Active Substance: ONDANSETRON HYDROCHLORIDE
     Indication: Nausea
     Dates: start: 202306
  4. XANAX [Concomitant]
     Active Substance: ALPRAZOLAM
     Dates: start: 202306

REACTIONS (1)
  - Product preparation error [Recovered/Resolved]

NARRATIVE: CASE EVENT DATE: 20230718
